FAERS Safety Report 11482562 (Version 1)
Quarter: 2015Q3

REPORT INFORMATION
  Report Type: Report from Study
  Country: DE (occurrence: DE)
  Receive Date: 20150909
  Receipt Date: 20150909
  Transmission Date: 20151125
  Serious: Yes (Other)
  Sender: FDA-Public Use
  Company Number: PHHY2015DE107196

PATIENT
  Sex: Male

DRUGS (5)
  1. AMITRIPTYLINE [Concomitant]
     Active Substance: AMITRIPTYLINE
     Indication: DEPRESSION
     Dosage: 25 OT, UNK
     Route: 065
     Dates: start: 2013
  2. PROPANOL [Concomitant]
     Active Substance: PROPRANOLOL HYDROCHLORIDE
     Indication: MIGRAINE
     Dosage: 30 OT, UNK
     Route: 065
     Dates: start: 2013
  3. PREDNISOLONE. [Concomitant]
     Active Substance: PREDNISOLONE
     Indication: VIITH NERVE PARALYSIS
     Dosage: 50 MG, QD
     Route: 065
     Dates: start: 20150819, end: 20150829
  4. TASIGNA [Suspect]
     Active Substance: NILOTINIB
     Indication: CHRONIC MYELOID LEUKAEMIA
     Dosage: 600 MG, QD
     Route: 065
     Dates: start: 20130828
  5. LITHIUM. [Concomitant]
     Active Substance: LITHIUM
     Indication: BIPOLAR I DISORDER
     Dosage: 450 OT, UNK
     Route: 065
     Dates: start: 2013

REACTIONS (4)
  - Renal failure [Unknown]
  - Eczema [Recovered/Resolved]
  - Leukocytosis [Unknown]
  - Gastritis [Recovered/Resolved]

NARRATIVE: CASE EVENT DATE: 20131107
